FAERS Safety Report 10521432 (Version 3)
Quarter: 2015Q1

REPORT INFORMATION
  Report Type: Spontaneous
  Country: US (occurrence: US)
  Receive Date: 20141016
  Receipt Date: 20150211
  Transmission Date: 20150720
  Serious: Yes (Hospitalization, Other)
  Sender: FDA-Public Use
  Company Number: US-ASTRAZENECA-2014SE75913

PATIENT
  Age: 50 Year
  Sex: Female
  Weight: 63.5 kg

DRUGS (30)
  1. SEROQUEL XR [Suspect]
     Active Substance: QUETIAPINE FUMARATE
     Indication: SLEEP DISORDER
     Dosage: QUETIAPINE FUMARATE, 600 MG AT NIGHT
     Route: 048
     Dates: start: 201308
  2. KLONOPIN [Concomitant]
     Active Substance: CLONAZEPAM
     Indication: ANXIETY DISORDER
     Dosage: CLONAZEPAM, 0.5 MG AS REQUIRED
     Route: 048
  3. MINOCYCLINE [Concomitant]
     Active Substance: MINOCYCLINE\MINOCYCLINE HYDROCHLORIDE
     Indication: PROPHYLAXIS URINARY TRACT INFECTION
  4. KLONOPIN [Concomitant]
     Active Substance: CLONAZEPAM
     Indication: BIPOLAR I DISORDER
     Dosage: CLONAZEPAM, 0.5 MG AS REQUIRED
     Route: 048
  5. NAPROXEN. [Concomitant]
     Active Substance: NAPROXEN
     Indication: OSTEOARTHRITIS
     Route: 048
     Dates: start: 1994
  6. NASOCORT 24 HOUR [Concomitant]
     Indication: MULTIPLE ALLERGIES
     Dosage: 1 PRN
     Route: 045
  7. PROBIOTIC [Concomitant]
     Active Substance: PROBIOTICS NOS
     Indication: IRRITABLE BOWEL SYNDROME
     Dosage: 1 DAILY
     Route: 048
  8. SEROQUEL XR [Suspect]
     Active Substance: QUETIAPINE FUMARATE
     Indication: BIPOLAR I DISORDER
     Dosage: QUETIAPINE FUMARATE, 600 MG AT NIGHT
     Route: 048
     Dates: start: 201308
  9. KLONOPIN [Concomitant]
     Active Substance: CLONAZEPAM
     Indication: ANXIETY DISORDER
     Route: 048
  10. AMITRIZA [Concomitant]
     Indication: IRRITABLE BOWEL SYNDROME
     Route: 048
  11. SEROQUEL XR [Suspect]
     Active Substance: QUETIAPINE FUMARATE
     Indication: SLEEP DISORDER
     Route: 048
  12. PROTONIX [Concomitant]
     Active Substance: PANTOPRAZOLE SODIUM
     Indication: GASTROOESOPHAGEAL REFLUX DISEASE
     Route: 048
  13. OXYTROL PATCH [Concomitant]
     Indication: BLADDER SPASM
     Dosage: 1 PATCH PER DAY
     Route: 062
  14. NASOCORT 24 HOUR [Concomitant]
     Indication: MULTIPLE ALLERGIES
     Dosage: 1 SPRAY IN NOSE ONCE PER DAY
     Route: 045
  15. KLONOPIN [Concomitant]
     Active Substance: CLONAZEPAM
     Indication: BIPOLAR I DISORDER
     Route: 048
  16. ACYCLOVIR. [Concomitant]
     Active Substance: ACYCLOVIR
     Indication: HERPES SIMPLEX
     Route: 048
  17. TRICOR [Concomitant]
     Active Substance: FENOFIBRATE
     Indication: HYPERLIPIDAEMIA
     Route: 048
     Dates: start: 200410
  18. SEROQUEL XR [Suspect]
     Active Substance: QUETIAPINE FUMARATE
     Indication: BIPOLAR I DISORDER
     Dosage: QUETIAPINE FUMARATE
     Route: 048
     Dates: start: 201410
  19. DEPAKOTE [Concomitant]
     Active Substance: DIVALPROEX SODIUM
     Indication: BIPOLAR I DISORDER
     Route: 048
     Dates: start: 201408
  20. SYNTHROID [Concomitant]
     Active Substance: LEVOTHYROXINE SODIUM
     Indication: HYPOTHYROIDISM
     Route: 048
     Dates: start: 1984
  21. SEROQUEL XR [Suspect]
     Active Substance: QUETIAPINE FUMARATE
     Indication: BIPOLAR I DISORDER
     Route: 048
  22. TRICOR [Concomitant]
     Active Substance: FENOFIBRATE
     Indication: HYPERLIPIDAEMIA
     Route: 048
  23. SEROQUEL XR [Suspect]
     Active Substance: QUETIAPINE FUMARATE
     Indication: SLEEP DISORDER
     Route: 048
  24. SEROQUEL XR [Suspect]
     Active Substance: QUETIAPINE FUMARATE
     Indication: BIPOLAR I DISORDER
     Route: 048
     Dates: start: 201310
  25. SEROQUEL XR [Suspect]
     Active Substance: QUETIAPINE FUMARATE
     Indication: SLEEP DISORDER
     Route: 048
     Dates: start: 201310
  26. SEROQUEL XR [Suspect]
     Active Substance: QUETIAPINE FUMARATE
     Indication: BIPOLAR I DISORDER
     Route: 048
  27. SEROQUEL XR [Suspect]
     Active Substance: QUETIAPINE FUMARATE
     Indication: SLEEP DISORDER
     Dosage: QUETIAPINE FUMARATE
     Route: 048
     Dates: start: 201410
  28. SYNTHROID [Concomitant]
     Active Substance: LEVOTHYROXINE SODIUM
     Indication: HYPOTHYROIDISM
     Route: 048
  29. CLARITIN D 24 HOUR [Concomitant]
     Indication: MULTIPLE ALLERGIES
  30. MUCINEX [Concomitant]
     Active Substance: GUAIFENESIN
     Indication: MULTIPLE ALLERGIES
     Route: 048

REACTIONS (14)
  - Sebaceous carcinoma [Unknown]
  - Depression [Unknown]
  - Drug dispensing error [Unknown]
  - Hereditary non-polyposis colorectal cancer syndrome [Unknown]
  - Uterine cancer [Unknown]
  - Intentional product use issue [Unknown]
  - Bipolar I disorder [Unknown]
  - Crying [Unknown]
  - Drug dose omission [Unknown]
  - Squamous cell carcinoma [Unknown]
  - Dry mouth [Not Recovered/Not Resolved]
  - Drug ineffective [Unknown]
  - Dysarthria [Unknown]
  - Somnolence [Unknown]

NARRATIVE: CASE EVENT DATE: 2006
